FAERS Safety Report 11758452 (Version 2)
Quarter: 2015Q4

REPORT INFORMATION
  Report Type: Spontaneous
  Country: GB (occurrence: GB)
  Receive Date: 20151120
  Receipt Date: 20151208
  Transmission Date: 20160304
  Serious: Yes (Hospitalization)
  Sender: FDA-Public Use
  Company Number: GB-FRESENIUS KABI-FK201505868

PATIENT
  Age: 71 Year
  Sex: Male

DRUGS (24)
  1. ETOPOSIDE (MANUFACTURER UNKNOWN) [Suspect]
     Active Substance: ETOPOSIDE
     Indication: LARGE CELL LUNG CANCER
     Dates: start: 20150824
  2. CIPROFLOXACIN. [Concomitant]
     Active Substance: CIPROFLOXACIN
     Dates: start: 20150926, end: 20151007
  3. MAGNESIUM ASPARTATE [Concomitant]
     Active Substance: MAGNESIUM ASPARTATE
     Route: 048
  4. METFORMIN [Concomitant]
     Active Substance: METFORMIN HYDROCHLORIDE
  5. SALBUTAMOL [Concomitant]
     Active Substance: ALBUTEROL
     Dates: start: 20150824
  6. TAMSULOSIN [Concomitant]
     Active Substance: TAMSULOSIN
  7. DEXAMETHASONE. [Concomitant]
     Active Substance: DEXAMETHASONE
  8. GLICLAZIDE [Concomitant]
     Active Substance: GLICLAZIDE
  9. DIGOXIN. [Concomitant]
     Active Substance: DIGOXIN
  10. MAGNESIUM GLYCEROPHOSPHATE [Concomitant]
     Active Substance: MAGNESIUM GLYCEROPHOSPHATE
     Dates: start: 20150824
  11. SAXAGLIPTIN [Concomitant]
     Active Substance: SAXAGLIPTIN
  12. CARBOPLATIN (MANUFACTURER UNKNOWN) [Suspect]
     Active Substance: CARBOPLATIN
     Indication: LARGE CELL LUNG CANCER
     Route: 042
     Dates: start: 20150824
  13. ALLOPURINOL. [Concomitant]
     Active Substance: ALLOPURINOL
  14. ENOXAPARIN [Concomitant]
     Active Substance: ENOXAPARIN
     Indication: ATRIAL FIBRILLATION
     Route: 058
  15. DEXAMETHASONE. [Concomitant]
     Active Substance: DEXAMETHASONE
     Dates: start: 20150918
  16. ARTIFICIAL SALIVA [Concomitant]
  17. LIDOCAINE. [Concomitant]
     Active Substance: LIDOCAINE
     Dates: start: 20150825
  18. OXYBUTYNIN [Concomitant]
     Active Substance: OXYBUTYNIN
  19. BISOPROLOL [Concomitant]
     Active Substance: BISOPROLOL
  20. DOMPERIDONE [Concomitant]
     Active Substance: DOMPERIDONE
  21. NUTRITIONAL SUPPLEMENT [Concomitant]
     Active Substance: DIETARY SUPPLEMENT
     Dates: start: 20150820
  22. ADCAL-D3 [Concomitant]
     Active Substance: CALCIUM CARBONATE\CHOLECALCIFEROL
     Dates: start: 20150824
  23. FUROSEMIDE. [Concomitant]
     Active Substance: FUROSEMIDE
  24. SIMVASTATIN. [Concomitant]
     Active Substance: SIMVASTATIN

REACTIONS (4)
  - Urinary tract infection [Unknown]
  - Urosepsis [Unknown]
  - Decreased appetite [Unknown]
  - Pancytopenia [Recovering/Resolving]

NARRATIVE: CASE EVENT DATE: 20150930
